FAERS Safety Report 5706009-X (Version None)
Quarter: 2008Q2

REPORT INFORMATION
  Report Type: 
  Country: None (occurrence: None)
  Receive Date: 20080415
  Receipt Date: 20080404
  Transmission Date: 20081010
  Serious: Yes (Other)
  Sender: FDA-Public Use
  Company Number: BR-PFIZER INC-2008030735

PATIENT
  Sex: Female
  Weight: 58 kg

DRUGS (6)
  1. FRONTAL [Suspect]
     Indication: PANIC DISORDER
     Route: 048
  2. FRONTAL [Suspect]
     Indication: ANXIETY
  3. FRONTAL [Suspect]
     Indication: DEPRESSION
  4. SERTRALINE [Suspect]
  5. PAROXETINE HCL [Concomitant]
  6. RIVOTRIL [Concomitant]

REACTIONS (7)
  - DEPRESSED LEVEL OF CONSCIOUSNESS [None]
  - EYE PAIN [None]
  - MUSCLE SPASMS [None]
  - SOMNOLENCE [None]
  - TREMOR [None]
  - VISION BLURRED [None]
  - VOMITING [None]
